FAERS Safety Report 17441958 (Version 2)
Quarter: 2020Q1

REPORT INFORMATION
  Report Type: Spontaneous
  Country: US (occurrence: US)
  Receive Date: 20200220
  Receipt Date: 20200220
  Transmission Date: 20200409
  Serious: No
  Sender: FDA-Public Use
  Company Number: US-JNJFOC-20200203387

PATIENT
  Sex: Female

DRUGS (1)
  1. WOMENS ROGAINE UNSCENTED [Suspect]
     Active Substance: MINOXIDIL
     Indication: ALOPECIA
     Dosage: HALF A CAPFUL, THE PATIENT LAST USED THE PRODUCT ON 29-JAN-2020.
     Route: 061

REACTIONS (2)
  - Drug ineffective [Unknown]
  - Hair growth abnormal [Not Recovered/Not Resolved]
